FAERS Safety Report 5865186-0 (Version None)
Quarter: 2008Q3

REPORT INFORMATION
  Report Type: 
  Country: None (occurrence: None)
  Receive Date: 20080829
  Receipt Date: 20080826
  Transmission Date: 20090109
  Serious: Yes (Death)
  Sender: FDA-Public Use
  Company Number: A0745257A

PATIENT
  Age: 92 Year
  Sex: Male

DRUGS (3)
  1. SERETIDE [Suspect]
     Indication: ASTHMA
     Dosage: 1PUFF TWICE PER DAY
     Route: 055
     Dates: start: 20080701, end: 20080729
  2. ANTIHYPERTENSIVE [Concomitant]
  3. PROSTATE MEDICATION [Concomitant]

REACTIONS (2)
  - ASTHMA [None]
  - LUNG INFECTION [None]
